FAERS Safety Report 16235448 (Version 1)
Quarter: 2019Q2

REPORT INFORMATION
  Report Type: Spontaneous
  Country: US (occurrence: US)
  Receive Date: 20190424
  Receipt Date: 20190424
  Transmission Date: 20190711
  Serious: No
  Sender: FDA-Public Use
  Company Number: US-BAUSCH-BL-2019-011052

PATIENT
  Sex: Female

DRUGS (1)
  1. LOTEMAX [Suspect]
     Active Substance: LOTEPREDNOL ETABONATE
     Indication: PRODUCT USED FOR UNKNOWN INDICATION
     Dosage: USED FOR APPROXIMATELY 4 DAYS
     Route: 047
     Dates: start: 201904, end: 20190407

REACTIONS (2)
  - Asthenopia [Recovered/Resolved]
  - Abnormal sensation in eye [Recovered/Resolved]

NARRATIVE: CASE EVENT DATE: 201904
